FAERS Safety Report 9250407 (Version 1)
Quarter: 2013Q1

REPORT INFORMATION
  Report Type: Spontaneous
  Country: US (occurrence: None)
  Receive Date: 20130305
  Receipt Date: 20130305
  Transmission Date: 20140127
  Serious: Yes (Hospitalization, Other)
  Sender: FDA-Public Use
  Company Number: 163-21880-12060390

PATIENT
  Age: 60 Year
  Sex: Male

DRUGS (13)
  1. REVLIMID (LENALIDOMIDE) (25 MILLIGRAM, CAPSULES) [Suspect]
     Indication: PLASMA CELL MYELOMA
     Route: 048
     Dates: start: 201006
  2. ALLOPURINOL [Concomitant]
  3. ASPIRIN (ACETYLSALICYLIC ACID) [Concomitant]
  4. ASTRAGALUS (ASTRAGALUS GUMMIFER) [Concomitant]
  5. CALCIUM (CALCIUM) [Concomitant]
  6. CIALIS (TADALAFIL) [Concomitant]
  7. DHEA (PRASTERONE) [Concomitant]
  8. LATANOPROST (LATANOPROST) [Concomitant]
  9. TIMOLOL (TIMOLOL) [Concomitant]
  10. VITAMIN B6 (PYRIDOXINE HYDROCHLORIDE) [Concomitant]
  11. VITAMIN C [Concomitant]
  12. VITAMIN D (ERGOCALCIFEROL) [Concomitant]
  13. THYROXINE (LEVOTHYROXINE SODIUM) [Concomitant]

REACTIONS (2)
  - Pneumonia [None]
  - Deep vein thrombosis [None]
